FAERS Safety Report 6876816-9 (Version None)
Quarter: 2010Q3

REPORT INFORMATION
  Report Type: 
  Country: None (occurrence: None)
  Receive Date: 20100727
  Receipt Date: 20100720
  Transmission Date: 20110219
  Serious: Yes (Hospitalization, Other)
  Sender: FDA-Public Use
  Company Number: PHHO2009US10761

PATIENT
  Sex: Male
  Weight: 195 kg

DRUGS (29)
  1. AFINITOR [Suspect]
     Indication: GLIOBLASTOMA MULTIFORME
     Dosage: 10 MG
     Route: 048
     Dates: start: 20090625, end: 20090811
  2. AVASTIN [Suspect]
     Indication: GLIOBLASTOMA MULTIFORME
     Dosage: 1036MG
     Route: 042
     Dates: start: 20090409, end: 20090806
  3. LISINOPRIL [Concomitant]
  4. LOZOL [Concomitant]
  5. SINGULAIR [Concomitant]
  6. ASPIRIN [Concomitant]
  7. PHENYTOIN [Concomitant]
  8. DEXAMETHASONE [Concomitant]
  9. ZOFRAN [Concomitant]
  10. DUONEB [Concomitant]
  11. COMBIVENT [Concomitant]
  12. ALBUTEROL [Concomitant]
  13. POTASSIUM [Concomitant]
  14. DILANTIN [Concomitant]
  15. DECADRON [Concomitant]
  16. ULTRAM [Concomitant]
  17. DARVOCET-N 100 [Concomitant]
  18. COMPAZINE [Concomitant]
  19. DIFLUCAN [Concomitant]
  20. BENADRYL [Concomitant]
  21. VICODIN [Concomitant]
  22. MORPHINE [Concomitant]
  23. PROCHLORPERAZINE [Concomitant]
  24. KYTRIL [Concomitant]
  25. ROBITUSSIN [Concomitant]
  26. ZITHROMAX [Concomitant]
  27. CEFTRIAXONE [Concomitant]
  28. SOLU-MEDROL [Concomitant]
  29. SODIUM CHLORIDE [Concomitant]

REACTIONS (18)
  - ASTHENIA [None]
  - CANDIDIASIS [None]
  - DYSPHAGIA [None]
  - DYSPNOEA [None]
  - EMPHYSEMA [None]
  - EPISTAXIS [None]
  - FAILURE TO THRIVE [None]
  - HAEMOPTYSIS [None]
  - HYPOPHAGIA [None]
  - LUNG INFILTRATION [None]
  - NAUSEA [None]
  - PNEUMONIA [None]
  - PRODUCTIVE COUGH [None]
  - PYREXIA [None]
  - RHONCHI [None]
  - SPUTUM DISCOLOURED [None]
  - UPPER RESPIRATORY TRACT INFECTION [None]
  - WHEEZING [None]
